FAERS Safety Report 13010579 (Version 1)
Quarter: 2016Q4

REPORT INFORMATION
  Report Type: Spontaneous
  Country: US (occurrence: US)
  Receive Date: 20161208
  Receipt Date: 20161208
  Transmission Date: 20170207
  Serious: Yes (Hospitalization, Other)
  Sender: FDA-Public Use
  Company Number: US-GLAXOSMITHKLINE-US2016181159

PATIENT
  Age: 55 Year
  Sex: Female

DRUGS (7)
  1. ASPIRIN. [Concomitant]
     Active Substance: ASPIRIN
  2. NOVOLOG [Concomitant]
     Active Substance: INSULIN ASPART
  3. IRON [Concomitant]
     Active Substance: IRON
  4. SIMVASTATIN. [Concomitant]
     Active Substance: SIMVASTATIN
  5. COREG CR [Suspect]
     Active Substance: CARVEDILOL PHOSPHATE
     Indication: HYPERTENSION
     Dosage: 10 MG, QD
     Dates: start: 201606
  6. BENZTROPINE [Concomitant]
     Active Substance: BENZTROPINE
  7. LEVEMIR [Concomitant]
     Active Substance: INSULIN DETEMIR

REACTIONS (3)
  - Drug administration error [Not Recovered/Not Resolved]
  - Ovarian cyst [Recovered/Resolved]
  - Appendicectomy [Unknown]

NARRATIVE: CASE EVENT DATE: 20161116
